FAERS Safety Report 10765764 (Version 1)
Quarter: 2015Q1

REPORT INFORMATION
  Report Type: Spontaneous
  Country: IT (occurrence: IT)
  Receive Date: 20150205
  Receipt Date: 20150205
  Transmission Date: 20150721
  Serious: Yes (Other)
  Sender: FDA-Public Use
  Company Number: IT-MYLANLABS-2015M1003077

PATIENT

DRUGS (13)
  1. IRINOTECAN [Suspect]
     Active Substance: IRINOTECAN
     Indication: BLADDER CANCER
     Dosage: (6 CYCLES) 180 MG/M2 ON DAY 1 WITH CYCLES REPEATED EVERY 2 WEEKS
     Route: 065
     Dates: start: 20091216, end: 20100303
  2. CISPLATIN. [Suspect]
     Active Substance: CISPLATIN
     Indication: BLADDER CANCER
     Dosage: 75 MG/M2 DAY 1 Q21 FOR 3 CYCLES
     Route: 065
     Dates: start: 20101201, end: 20110118
  3. DOCETAXEL. [Suspect]
     Active Substance: DOCETAXEL
     Indication: BLADDER CANCER
     Dosage: 75 MG/M2 DAY 1 Q21 FOR 3 CYCLES
     Route: 065
     Dates: start: 20101201, end: 20110118
  4. SUNITINIB [Suspect]
     Active Substance: SUNITINIB
     Indication: BLADDER CANCER
     Dosage: 25MG
     Route: 065
     Dates: start: 20110223, end: 201105
  5. PEGFILGRASTIM [Concomitant]
     Active Substance: PEGFILGRASTIM
     Dosage: SINGLE INJECTION
     Route: 058
  6. OXALIPLATIN. [Suspect]
     Active Substance: OXALIPLATIN
     Indication: BLADDER CANCER
     Dosage: (6 CYCLES) 85 MG/M2 ON DAY 2 WITH CYCLES REPEATED EVERY 2 WEEKS
     Route: 065
     Dates: start: 20091216, end: 20100303
  7. DOCETAXEL. [Suspect]
     Active Substance: DOCETAXEL
     Indication: OFF LABEL USE
  8. CAPECITABINE. [Suspect]
     Active Substance: CAPECITABINE
     Indication: BLADDER CANCER
     Dosage: (6 CYCLES) 2000 MG/M2/DAY (DAY 2-6) WITH CYCLES REPEATED EVERY 2 WEEKS
     Route: 065
     Dates: start: 20091216, end: 20100303
  9. OXALIPLATIN. [Suspect]
     Active Substance: OXALIPLATIN
     Indication: OFF LABEL USE
  10. CAPECITABINE. [Suspect]
     Active Substance: CAPECITABINE
     Indication: OFF LABEL USE
  11. SUNITINIB [Suspect]
     Active Substance: SUNITINIB
     Indication: OFF LABEL USE
  12. FENTANYL. [Concomitant]
     Active Substance: FENTANYL
     Indication: ABDOMINAL PAIN
     Dosage: 50 MICROGM/H
     Route: 062
  13. IRINOTECAN [Suspect]
     Active Substance: IRINOTECAN
     Indication: OFF LABEL USE

REACTIONS (4)
  - Neutropenia [Unknown]
  - Metrorrhagia [Unknown]
  - Nausea [Unknown]
  - Off label use [Unknown]
